FAERS Safety Report 10069605 (Version 2)
Quarter: 2014Q2

REPORT INFORMATION
  Report Type: Spontaneous
  Country: US (occurrence: US)
  Receive Date: 20140410
  Receipt Date: 20140423
  Transmission Date: 20141212
  Serious: Yes (Hospitalization)
  Sender: FDA-Public Use
  Company Number: US-BIOGENIDEC-2014BI031183

PATIENT
  Sex: Female

DRUGS (4)
  1. AVONEX [Suspect]
     Indication: MULTIPLE SCLEROSIS
     Route: 030
     Dates: start: 19960701, end: 20021114
  2. AVONEX [Suspect]
     Indication: MULTIPLE SCLEROSIS
     Route: 030
     Dates: start: 20051010
  3. AVONEX [Suspect]
     Indication: MULTIPLE SCLEROSIS
     Route: 030
     Dates: start: 20111114, end: 20130301
  4. SOLU-MEDROL [Concomitant]

REACTIONS (4)
  - Staphylococcal infection [Not Recovered/Not Resolved]
  - Infection [Unknown]
  - Weight decreased [Recovered/Resolved]
  - Hypophagia [Recovered/Resolved]
